FAERS Safety Report 7441566-7 (Version None)
Quarter: 2011Q2

REPORT INFORMATION
  Report Type: 
  Country: None (occurrence: None)
  Receive Date: 20110428
  Receipt Date: 20110425
  Transmission Date: 20111010
  Serious: No
  Sender: FDA-Public Use
  Company Number: US-PFIZER INC-2011089222

PATIENT
  Sex: Female
  Weight: 49.887 kg

DRUGS (2)
  1. GENOTROPIN [Suspect]
     Indication: GROWTH HORMONE DEFICIENCY
     Dosage: 3.4 MG, DAILY
     Route: 030
     Dates: start: 20071101
  2. LUPRON [Concomitant]
     Dosage: UNK, ONCE IN THREE WEEK

REACTIONS (5)
  - RASH PAPULAR [None]
  - ERYTHEMA [None]
  - INCORRECT ROUTE OF DRUG ADMINISTRATION [None]
  - URTICARIA [None]
  - INJECTION SITE REACTION [None]
